FAERS Safety Report 8358060-1 (Version None)
Quarter: 2012Q2

REPORT INFORMATION
  Report Type: 
  Country: None (occurrence: None)
  Receive Date: 20120514
  Receipt Date: 20120504
  Transmission Date: 20120825
  Serious: Yes (Hospitalization)
  Sender: FDA-Public Use
  Company Number: GB-ROCHE-744937

PATIENT
  Sex: Female
  Weight: 109.4 kg

DRUGS (5)
  1. ATORVASTAN [Concomitant]
  2. PRAMIPEXOLE DIHYDROCHLORIDE [Concomitant]
  3. CLONAZEPAM [Concomitant]
  4. ASPIRIN [Concomitant]
  5. MIRCERA [Suspect]
     Indication: NEPHROGENIC ANAEMIA
     Dosage: PERMANENTLY DISCONTINUED. DATE OF LAST DOSE PRIOR TO SAE: 25 NOVEMBER 2010.
     Route: 042
     Dates: start: 20101125, end: 20101126

REACTIONS (2)
  - HYPOTENSION [None]
  - CHEST PAIN [None]
